FAERS Safety Report 7564858-X (Version None)
Quarter: 2011Q2

REPORT INFORMATION
  Report Type: 
  Country: None (occurrence: None)
  Receive Date: 20110622
  Receipt Date: 20110110
  Transmission Date: 20111010
  Serious: Yes (Other)
  Sender: FDA-Public Use
  Company Number: US-MYLANLABS-2011S1000669

PATIENT
  Age: 18 Year
  Sex: Male

DRUGS (5)
  1. CLOZAPINE [Suspect]
     Indication: SCHIZOAFFECTIVE DISORDER
     Dates: end: 20110106
  2. ATIVAN [Concomitant]
  3. LITHIUM [Concomitant]
  4. SYNTHROID [Concomitant]
  5. RISPERDAL [Concomitant]

REACTIONS (1)
  - GRANULOCYTOPENIA [None]
